FAERS Safety Report 5319117-2 (Version None)
Quarter: 2007Q2

REPORT INFORMATION
  Report Type: 
  Country: None (occurrence: None)
  Receive Date: 20070508
  Receipt Date: 20070502
  Transmission Date: 20071010
  Serious: Yes (Hospitalization)
  Sender: FDA-Public Use
  Company Number: B0468973A

PATIENT
  Sex: Female

DRUGS (3)
  1. ZYBAN [Suspect]
     Route: 048
  2. PREDNISOLONE [Concomitant]
  3. CHLORPHENIRAMINE MALEATE [Concomitant]

REACTIONS (5)
  - AURICULAR SWELLING [None]
  - BLISTER [None]
  - EYELID DISORDER [None]
  - LIP SWELLING [None]
  - TOXIC SHOCK SYNDROME [None]
